FAERS Safety Report 12585765 (Version 2)
Quarter: 2017Q3

REPORT INFORMATION
  Report Type: Spontaneous
  Country: DE (occurrence: DE)
  Receive Date: 20160725
  Receipt Date: 20170721
  Transmission Date: 20171127
  Serious: Yes (Other)
  Sender: FDA-Public Use
  Company Number: DE-WEST-WARD PHARMACEUTICALS CORP.-DE-H14001-16-01324

PATIENT
  Sex: Female

DRUGS (1)
  1. CIPROFLOXACIN. [Suspect]
     Active Substance: CIPROFLOXACIN
     Indication: PYELONEPHRITIS
     Route: 065
     Dates: start: 201507

REACTIONS (17)
  - Tendon discomfort [Not Recovered/Not Resolved]
  - Immune system disorder [Unknown]
  - Muscular weakness [Unknown]
  - Musculoskeletal discomfort [Not Recovered/Not Resolved]
  - Cognitive disorder [Unknown]
  - Chest discomfort [Unknown]
  - Oropharyngeal pain [Unknown]
  - Vulvovaginal candidiasis [Unknown]
  - Affect lability [Unknown]
  - Fatigue [Unknown]
  - Onychoclasis [Unknown]
  - Alopecia [Unknown]
  - Gastrointestinal fungal infection [Unknown]
  - Cardiac discomfort [Unknown]
  - Weight decreased [Unknown]
  - Bronchitis [Unknown]
  - Headache [Unknown]
